FAERS Safety Report 4727120-6 (Version None)
Quarter: 2005Q3

REPORT INFORMATION
  Report Type: 
  Country: None (occurrence: None)
  Receive Date: 20050728
  Receipt Date: 20050511
  Transmission Date: 20060218
  Serious: Yes (Other)
  Sender: FDA-Public Use
  Company Number: ES-NOVOPROD-244106

PATIENT
  Age: 45 Year
  Sex: Female

DRUGS (1)
  1. NOVOMIX 30 FLEXPEN [Suspect]
     Indication: ILL-DEFINED DISORDER
     Dates: start: 20041201

REACTIONS (3)
  - FEELING HOT [None]
  - PRURITUS [None]
  - RASH [None]
